FAERS Safety Report 15835339 (Version 1)
Quarter: 2019Q1

REPORT INFORMATION
  Report Type: Spontaneous
  Country: GB (occurrence: GB)
  Receive Date: 20190117
  Receipt Date: 20190117
  Transmission Date: 20190417
  Serious: Yes (Other)
  Sender: FDA-Public Use
  Company Number: GB-BAXTER-2019BAX000615

PATIENT
  Age: 84 Year
  Sex: Male

DRUGS (3)
  1. LIDOCAINE 20MG/ML SOLUTION FOR INJECTION [Suspect]
     Active Substance: LIDOCAINE
     Indication: ANAESTHESIA PROCEDURE
     Dosage: 6 ML OF A MIXTURE OF LIGNOCAINE (2%) AND BUPIVACAINE (0.75%) INJECTED INFERO-NASALLY
     Route: 045
  2. ATENOLOL. [Concomitant]
     Active Substance: ATENOLOL
     Indication: HYPERTENSION
     Route: 065
  3. BUPIVACAINE-CLARIS 5MG/ML SOLUTION FOR INJECTION [Suspect]
     Active Substance: BUPIVACAINE HYDROCHLORIDE
     Indication: ANAESTHESIA PROCEDURE
     Dosage: 6 ML OF A MIXTURE OF LIGNOCAINE (2%) AND BUPIVACAINE (0.75%), INJECTED INFERO-NASALLY
     Route: 045

REACTIONS (2)
  - Retinal artery occlusion [Recovered/Resolved]
  - Optic atrophy [Recovered/Resolved]
